FAERS Safety Report 25458414 (Version 2)
Quarter: 2025Q2

REPORT INFORMATION
  Report Type: Spontaneous
  Country: US (occurrence: US)
  Receive Date: 20250620
  Receipt Date: 20250620
  Transmission Date: 20250717
  Serious: Yes (Hospitalization)
  Sender: ALVOGEN
  Company Number: US-ALVOGEN-2025098185

PATIENT
  Sex: Female

DRUGS (5)
  1. TERIPARATIDE [Suspect]
     Active Substance: TERIPARATIDE
     Indication: Illness
     Dosage: STRENGTH: 250MCG/ML
     Route: 058
  2. EPINEPHRINE AUTO-INJ [Concomitant]
     Indication: Product used for unknown indication
  3. DUPIXENT [Concomitant]
     Active Substance: DUPILUMAB
     Indication: Asthma
  4. HIZENTRA 20% PFS (4GM TOTAL) [Concomitant]
     Indication: Immunodeficiency common variable
  5. LIDOCAINE/PRILOCAINE CRM [Concomitant]
     Indication: Product used for unknown indication

REACTIONS (4)
  - Fall [Unknown]
  - Pain [Unknown]
  - Fatigue [Unknown]
  - Somnolence [Unknown]
